FAERS Safety Report 5408393-3 (Version None)
Quarter: 2007Q3

REPORT INFORMATION
  Report Type: 
  Country: None (occurrence: None)
  Receive Date: 20070808
  Receipt Date: 20070726
  Transmission Date: 20080115
  Serious: Yes (Hospitalization)
  Sender: FDA-Public Use
  Company Number: AU-ELI_LILLY_AND_COMPANY-AU200707006390

PATIENT
  Age: 70 Year
  Sex: Male

DRUGS (11)
  1. ZYPREXA [Suspect]
     Indication: BIPOLAR DISORDER
     Dosage: 10 MG, DAILY (1/D)
     Route: 048
  2. RABEPRAZOLE SODIUM [Concomitant]
     Dosage: 20 MG, DAILY (1/D)
  3. ISCOVER [Concomitant]
     Dosage: 75 MG, DAILY (1/D)
  4. ACTONEL COMBI [Concomitant]
  5. ZYLOPRIM [Concomitant]
  6. OSTEVIT-D [Concomitant]
  7. ZANIDIP [Concomitant]
     Dosage: 20 MG, DAILY (1/D)
  8. CARTIA /AUS/ [Concomitant]
     Dosage: 100 MG, DAILY (1/D)
  9. LIPITOR [Concomitant]
     Dosage: 20 MG, DAILY (1/D)
  10. ISOPTIN [Concomitant]
     Dosage: 180 MG, DAILY (1/D)
  11. PANAMAX [Concomitant]
     Dosage: 2 D/F, EVERY 4 HRS

REACTIONS (1)
  - THROMBOSIS [None]
